FAERS Safety Report 8415447-6 (Version None)
Quarter: 2012Q2

REPORT INFORMATION
  Report Type: 
  Country: None (occurrence: None)
  Receive Date: 20120606
  Receipt Date: 20120601
  Transmission Date: 20120825
  Serious: Yes (Other)
  Sender: FDA-Public Use
  Company Number: PHHY2012BR047741

PATIENT
  Sex: Male

DRUGS (5)
  1. TRILEPTAL [Suspect]
     Route: 048
  2. HALDOL [Suspect]
  3. CLONAZEPAM [Suspect]
  4. LAPRIMOGINA [Suspect]
  5. TOPIRAMATE [Suspect]

REACTIONS (2)
  - RASMUSSEN ENCEPHALITIS [None]
  - CONVULSION [None]
